FAERS Safety Report 6111095-1 (Version None)
Quarter: 2009Q1

REPORT INFORMATION
  Report Type: 
  Country: None (occurrence: None)
  Receive Date: 20090311
  Receipt Date: 20080514
  Transmission Date: 20090719
  Serious: No
  Sender: FDA-Public Use
  Company Number: US-KINGPHARMUSA00001-K200800567

PATIENT
  Sex: Female

DRUGS (1)
  1. ALTACE [Suspect]

REACTIONS (2)
  - ANGIOEDEMA [None]
  - MOUTH HAEMORRHAGE [None]
